FAERS Safety Report 11435807 (Version 1)
Quarter: 2015Q3

REPORT INFORMATION
  Report Type: Spontaneous
  Country: US (occurrence: US)
  Receive Date: 20150821
  Receipt Date: 20150821
  Transmission Date: 20151125
  Serious: Yes (Other)
  Sender: FDA-Public Use
  Company Number: US-ELI_LILLY_AND_COMPANY-US201311006598

PATIENT
  Age: 61 Year
  Sex: Male
  Weight: 81.63 kg

DRUGS (3)
  1. TRAMADOL. [Concomitant]
     Active Substance: TRAMADOL
     Indication: ARTHRALGIA
  2. CIALIS [Suspect]
     Active Substance: TADALAFIL
     Indication: BENIGN PROSTATIC HYPERPLASIA
     Dosage: 5 MG, QD
     Route: 048
     Dates: start: 20131001, end: 20131109
  3. TRAMADOL. [Concomitant]
     Active Substance: TRAMADOL
     Indication: MYALGIA
     Dosage: 1 DF, PRN
     Route: 065

REACTIONS (2)
  - Tinnitus [Not Recovered/Not Resolved]
  - Sudden hearing loss [Not Recovered/Not Resolved]

NARRATIVE: CASE EVENT DATE: 20131108
